FAERS Safety Report 9892981 (Version 5)
Quarter: 2015Q4

REPORT INFORMATION
  Report Type: Spontaneous
  Country: US (occurrence: US)
  Receive Date: 20140213
  Receipt Date: 20151102
  Transmission Date: 20160305
  Serious: No
  Sender: FDA-Public Use
  Company Number: US-BIOGENIDEC-2014BI014021

PATIENT
  Sex: Male
  Weight: 83 kg

DRUGS (15)
  1. AMPYRA [Concomitant]
     Active Substance: DALFAMPRIDINE
     Indication: GAIT DISTURBANCE
     Route: 048
     Dates: start: 201311
  2. AMPYRA [Concomitant]
     Active Substance: DALFAMPRIDINE
     Indication: GAIT DISTURBANCE
     Route: 048
     Dates: start: 20121102, end: 20130626
  3. CENTRUM SILVER [Concomitant]
     Active Substance: MINERALS\VITAMINS
  4. FISH OIL [Concomitant]
     Active Substance: FISH OIL
  5. ASPIRIN. [Concomitant]
     Active Substance: ASPIRIN
     Indication: PAIN
     Route: 048
  6. ASPIRIN. [Concomitant]
     Active Substance: ASPIRIN
     Indication: PAIN
  7. VITAMIN E [Concomitant]
     Active Substance: .ALPHA.-TOCOPHEROL
  8. VITAMIN C [Concomitant]
     Active Substance: ASCORBIC ACID
  9. LASIX [Concomitant]
     Active Substance: FUROSEMIDE
  10. LAMISIL [Concomitant]
     Active Substance: TERBINAFINE HYDROCHLORIDE
  11. ASA [Concomitant]
     Active Substance: ASPIRIN
     Indication: PAIN
  12. VITAMIN D3 [Concomitant]
     Active Substance: CHOLECALCIFEROL
  13. TYSABRI [Suspect]
     Active Substance: NATALIZUMAB
     Indication: MULTIPLE SCLEROSIS
     Route: 042
     Dates: start: 20130520
  14. OXYBUTYNIN [Concomitant]
     Active Substance: OXYBUTYNIN
     Indication: BLADDER DISORDER
  15. AMPYRA [Concomitant]
     Active Substance: DALFAMPRIDINE
     Indication: GAIT DISTURBANCE
     Route: 048
     Dates: start: 20130301, end: 201311

REACTIONS (37)
  - Defaecation urgency [Unknown]
  - Muscle spasticity [Unknown]
  - Influenza like illness [Unknown]
  - Nerve root compression [Unknown]
  - Action tremor [Unknown]
  - Paraesthesia [Not Recovered/Not Resolved]
  - Vision blurred [Unknown]
  - Erythema [Unknown]
  - Cervical myelopathy [Unknown]
  - Myelopathy [Unknown]
  - Dermal cyst [Unknown]
  - General symptom [Unknown]
  - Asthenia [Not Recovered/Not Resolved]
  - Sensory disturbance [Unknown]
  - Deafness [Unknown]
  - Dupuytren^s contracture [Unknown]
  - Visual impairment [Unknown]
  - Abasia [Unknown]
  - Pain [Not Recovered/Not Resolved]
  - Abdominal pain [Not Recovered/Not Resolved]
  - Overweight [Unknown]
  - Disorientation [Unknown]
  - Therapeutic response unexpected [Unknown]
  - Ataxia [Unknown]
  - Joint swelling [Unknown]
  - Vertebral foraminal stenosis [Unknown]
  - Multiple sclerosis [Not Recovered/Not Resolved]
  - Anxiety [Not Recovered/Not Resolved]
  - Mobility decreased [Not Recovered/Not Resolved]
  - Neurogenic bladder [Unknown]
  - Tinnitus [Unknown]
  - Toxicity to various agents [Unknown]
  - Hypoacusis [Unknown]
  - Fear of falling [Unknown]
  - Muscular weakness [Not Recovered/Not Resolved]
  - Cognitive disorder [Unknown]
  - Insomnia [Unknown]

NARRATIVE: CASE EVENT DATE: 2013
